FAERS Safety Report 8169783-1 (Version None)
Quarter: 2012Q1

REPORT INFORMATION
  Report Type: 
  Country: None (occurrence: None)
  Receive Date: 20120228
  Receipt Date: 20120220
  Transmission Date: 20120608
  Serious: Yes (Hospitalization)
  Sender: FDA-Public Use
  Company Number: CH-BRISTOL-MYERS SQUIBB COMPANY-16355604

PATIENT
  Age: 82 Year
  Sex: Male

DRUGS (4)
  1. IRINOTECAN HCL [Suspect]
     Indication: COLORECTAL CANCER METASTATIC
     Route: 042
     Dates: start: 20111214, end: 20111214
  2. ERBITUX [Suspect]
     Indication: COLORECTAL CANCER METASTATIC
     Dosage: LAST ERBITUX INFUSION:21DEC2011.
     Route: 042
     Dates: start: 20111214, end: 20111221
  3. FLUOROURACIL [Suspect]
     Indication: COLORECTAL CANCER METASTATIC
     Dosage: 14-15DEC11 300MG INTRAVENOUS BOLUS. ALSO 2400MG PUMP 24HRS INTRAVENOUS 14-15DEC11.
     Route: 040
     Dates: start: 20111214, end: 20111215
  4. LEUCOVORIN CALCIUM [Suspect]
     Indication: COLORECTAL CANCER METASTATIC
     Route: 042
     Dates: start: 20111214, end: 20111214

REACTIONS (1)
  - VASCULITIS NECROTISING [None]
